FAERS Safety Report 9149046 (Version 1)
Quarter: 2013Q1

REPORT INFORMATION
  Report Type: Spontaneous
  Country: US (occurrence: None)
  Receive Date: 20130228
  Receipt Date: 20130228
  Transmission Date: 20140127
  Serious: Yes (Other)
  Sender: FDA-Public Use
  Company Number: None

PATIENT
  Sex: Female
  Weight: 86 kg

DRUGS (3)
  1. NTG NATURALS PURIFYING FACIAL CLNSR 6OZ [Suspect]
     Dosage: 1 PUMP, 2XDAY, TOPICAL
     Route: 061
  2. NTG [Suspect]
     Dosage: DIME SIZE, 1X DAY, TOPICAL
     Route: 061
  3. DIOVAN (VALSARTAN) [Concomitant]

REACTIONS (3)
  - Rash erythematous [None]
  - Pruritus [None]
  - Burning sensation [None]
